FAERS Safety Report 13378079 (Version 3)
Quarter: 2017Q4

REPORT INFORMATION
  Report Type: Spontaneous
  Country: US (occurrence: US)
  Receive Date: 20170328
  Receipt Date: 20171227
  Transmission Date: 20180320
  Serious: Yes (Hospitalization, Other)
  Sender: FDA-Public Use
  Company Number: US-GLENMARK PHARMACEUTICALS-2017GMK026755

PATIENT
  Age: 68 Year
  Sex: Female

DRUGS (19)
  1. LEVETIRACETAM. [Concomitant]
     Active Substance: LEVETIRACETAM
     Indication: NOCARDIOSIS
     Route: 065
  2. TEDIZOLID [Concomitant]
     Active Substance: TEDIZOLID
     Indication: NOCARDIOSIS
     Dosage: 200 MG, QD
     Route: 048
  3. SULFAMETHOXAZOLE/TRIMETHOPRIM [Suspect]
     Active Substance: SULFAMETHOXAZOLE\TRIMETHOPRIM
     Dosage: 800/160 MG, TID
     Route: 048
  4. LINEZOLID. [Suspect]
     Active Substance: LINEZOLID
     Indication: NOCARDIOSIS
     Dosage: 600 MG, BID
     Route: 042
  5. IMIPENEM AND CILASTATIN [Suspect]
     Active Substance: CILASTATIN SODIUM\IMIPENEM
     Indication: TOXICITY TO VARIOUS AGENTS
     Dosage: 1 MG, EVERY 8 HOURS
     Route: 042
  6. AMIKACIN [Concomitant]
     Active Substance: AMIKACIN
     Indication: TOXICITY TO VARIOUS AGENTS
     Dosage: 15 MG/KG, QD
     Route: 042
  7. MOXIFLOXACIN. [Suspect]
     Active Substance: MOXIFLOXACIN
     Indication: NOCARDIOSIS
     Dosage: 400 MG, QD
     Route: 042
  8. VORICONAZOLE. [Concomitant]
     Active Substance: VORICONAZOLE
     Dosage: UNK
     Route: 048
  9. AMIKACIN [Concomitant]
     Active Substance: AMIKACIN
     Indication: NOCARDIOSIS
     Dosage: UNK
  10. SULFAMETHOXAZOLE/TRIMETHOPRIM [Suspect]
     Active Substance: SULFAMETHOXAZOLE\TRIMETHOPRIM
     Dosage: UNK
     Route: 042
  11. LINEZOLID. [Suspect]
     Active Substance: LINEZOLID
     Dosage: 600 MG, BID
     Route: 048
  12. DEXAMETHASONE. [Concomitant]
     Active Substance: DEXAMETHASONE
     Indication: NOCARDIOSIS
     Route: 065
  13. IMIPENEM AND CILASTATIN [Suspect]
     Active Substance: CILASTATIN SODIUM\IMIPENEM
     Indication: NOCARDIOSIS
     Dosage: 1 G, EVERY 8 HOURS (EMPIRICALLY)
     Route: 042
  14. THALIDOMIDE [Concomitant]
     Active Substance: THALIDOMIDE
     Indication: PLASMA CELL MYELOMA
     Route: 065
  15. VORICONAZOLE. [Concomitant]
     Active Substance: VORICONAZOLE
     Indication: BRONCHOPULMONARY ASPERGILLOSIS
     Dosage: UNK
     Route: 042
  16. SULFAMETHOXAZOLE/TRIMETHOPRIM [Suspect]
     Active Substance: SULFAMETHOXAZOLE\TRIMETHOPRIM
     Indication: NOCARDIOSIS
     Dosage: 15 MG/KG, QD
     Route: 042
  17. DEXAMETHASONE. [Concomitant]
     Active Substance: DEXAMETHASONE
     Indication: PLASMA CELL MYELOMA
  18. BORTEZOMIB [Concomitant]
     Active Substance: BORTEZOMIB
     Indication: PLASMA CELL MYELOMA
     Route: 065
  19. DRONEDARONE [Concomitant]
     Active Substance: DRONEDARONE
     Indication: ATRIAL FIBRILLATION
     Route: 065

REACTIONS (7)
  - Haemoglobin decreased [Unknown]
  - Therapeutic response unexpected [Unknown]
  - White blood cell count decreased [Unknown]
  - Product use in unapproved indication [Unknown]
  - Platelet count decreased [Unknown]
  - Treatment failure [Unknown]
  - Toxicity to various agents [Unknown]
